FAERS Safety Report 9232053 (Version 3)
Quarter: 2013Q3

REPORT INFORMATION
  Report Type: Report from Study
  Country: US (occurrence: US)
  Receive Date: 20130415
  Receipt Date: 20130820
  Transmission Date: 20140515
  Serious: Yes (Hospitalization)
  Sender: FDA-Public Use
  Company Number: US-ABBOTT-13P-163-1073862-00

PATIENT
  Age: 31 Year
  Sex: Female

DRUGS (18)
  1. HUMIRA [Suspect]
     Indication: CROHN^S DISEASE
     Route: 058
     Dates: start: 2010
  2. VICODIN [Suspect]
     Indication: PAIN
  3. DILAUDID [Suspect]
     Indication: PRODUCT USED FOR UNKNOWN INDICATION
  4. CARAFATE [Suspect]
     Indication: CROHN^S DISEASE
  5. GABAPENTIN [Concomitant]
     Indication: PRODUCT USED FOR UNKNOWN INDICATION
  6. LEXAPRO [Concomitant]
     Indication: DEPRESSION
  7. AMITRIPTYLINE [Concomitant]
     Indication: INSOMNIA
     Dosage: AT BEDTIME
  8. PROPRANOLOL [Concomitant]
     Indication: HYPERTENSION
  9. ROBAXIN [Concomitant]
     Indication: MUSCLE RELAXANT THERAPY
     Dosage: PRN QID
  10. QUESTRAN [Concomitant]
     Indication: SHORT-BOWEL SYNDROME
     Dosage: 4 GRAMS IN 8 OZ OF WATER DAILY
  11. MAGNESIUM OXIDE [Concomitant]
     Indication: MINERAL SUPPLEMENTATION
  12. IMITREX [Concomitant]
     Indication: MIGRAINE
     Dosage: UP TO 2 DOSES AS NEEDED
  13. FOLIC ACID [Concomitant]
     Indication: VITAMIN SUPPLEMENTATION
  14. CLONAZEPAM [Concomitant]
     Indication: ANXIETY
  15. TRAMADOL [Concomitant]
     Indication: PAIN
  16. HYDROXYZINE [Concomitant]
     Indication: PRODUCT USED FOR UNKNOWN INDICATION
     Dosage: IN CONJUCTION WITH TRAMADOL
  17. ROBINUL FORTE [Concomitant]
     Indication: IMPAIRED GASTRIC EMPTYING
  18. ROBINUL FORTE [Concomitant]
     Indication: GASTROOESOPHAGEAL REFLUX DISEASE

REACTIONS (8)
  - Impaired gastric emptying [Recovering/Resolving]
  - Drug withdrawal syndrome [Unknown]
  - Diarrhoea [Unknown]
  - Blood potassium increased [Unknown]
  - Hypertension [Unknown]
  - Hypoaesthesia [Unknown]
  - Nerve injury [Unknown]
  - Gastrooesophageal reflux disease [Unknown]
